FAERS Safety Report 6648068-6 (Version None)
Quarter: 2010Q1

REPORT INFORMATION
  Report Type: 
  Country: None (occurrence: None)
  Receive Date: 20100324
  Receipt Date: 20100318
  Transmission Date: 20100710
  Serious: Yes (Hospitalization)
  Sender: FDA-Public Use
  Company Number: IT-GENZYME-POMP-1000886

PATIENT
  Sex: Male

DRUGS (1)
  1. MYOZYME [Suspect]
     Indication: GLYCOGEN STORAGE DISEASE TYPE II
     Dosage: UNK

REACTIONS (3)
  - DRUG INEFFECTIVE [None]
  - HYPOTONIA [None]
  - RESPIRATORY DISORDER [None]
